FAERS Safety Report 17730344 (Version 5)
Quarter: 2020Q3

REPORT INFORMATION
  Report Type: Spontaneous
  Country: US (occurrence: US)
  Receive Date: 20200430
  Receipt Date: 20200908
  Transmission Date: 20201102
  Serious: Yes (Hospitalization, Other)
  Sender: FDA-Public Use
  Company Number: US-PFIZER INC-2018504441

PATIENT
  Age: 75 Year
  Sex: Male
  Weight: 113.4 kg

DRUGS (1)
  1. CELEBREX [Suspect]
     Active Substance: CELECOXIB
     Indication: OSTEOARTHRITIS
     Dosage: 200 MG, 1X/DAY
     Route: 048

REACTIONS (9)
  - Hypoacusis [Recovering/Resolving]
  - Stress [Unknown]
  - COVID-19 [Recovering/Resolving]
  - Neuropathy peripheral [Recovering/Resolving]
  - Condition aggravated [Unknown]
  - Visual impairment [Recovering/Resolving]
  - Memory impairment [Recovering/Resolving]
  - Weight increased [Unknown]
  - Lip haemorrhage [Unknown]

NARRATIVE: CASE EVENT DATE: 20200723
